FAERS Safety Report 15640710 (Version 1)
Quarter: 2018Q4

REPORT INFORMATION
  Report Type: Spontaneous
  Country: US (occurrence: US)
  Receive Date: 20181120
  Receipt Date: 20181120
  Transmission Date: 20190205
  Serious: No
  Sender: FDA-Public Use
  Company Number: US-CELGENEUS-USA-20181105329

PATIENT
  Sex: Female
  Weight: 64.47 kg

DRUGS (2)
  1. POMALYST [Suspect]
     Active Substance: POMALIDOMIDE
     Indication: PLASMA CELL MYELOMA
     Dosage: 4 MILLIGRAM
     Route: 048
     Dates: start: 201801
  2. POMALYST [Suspect]
     Active Substance: POMALIDOMIDE
     Indication: MYELODYSPLASTIC SYNDROME
     Dosage: 4 MILLIGRAM
     Route: 048
     Dates: start: 201810

REACTIONS (3)
  - Breast disorder [Unknown]
  - White blood cell count decreased [Unknown]
  - Red blood cell count decreased [Unknown]

NARRATIVE: CASE EVENT DATE: 2018
